FAERS Safety Report 7967136-X (Version None)
Quarter: 2011Q4

REPORT INFORMATION
  Report Type: 
  Country: None (occurrence: None)
  Receive Date: 20111209
  Receipt Date: 20111208
  Transmission Date: 20120403
  Serious: No
  Sender: FDA-Public Use
  Company Number: FI-PFIZER INC-2011294120

PATIENT
  Age: 35 Year
  Sex: Male

DRUGS (2)
  1. METHOTREXATE SODIUM [Suspect]
     Indication: ANKYLOSING SPONDYLITIS
  2. SULFASALAZINE [Suspect]
     Indication: ANKYLOSING SPONDYLITIS

REACTIONS (1)
  - NO ADVERSE EVENT [None]
